FAERS Safety Report 6848199-1 (Version None)
Quarter: 2010Q3

REPORT INFORMATION
  Report Type: 
  Country: None (occurrence: None)
  Receive Date: 20100716
  Receipt Date: 20100709
  Transmission Date: 20110219
  Serious: Yes (Life-Threatening, Hospitalization, Disabling)
  Sender: FDA-Public Use
  Company Number: B0664530A

PATIENT
  Sex: Male

DRUGS (1)
  1. ZOVIRAX [Suspect]
     Indication: ORAL HERPES
     Dosage: 1000MG PER DAY
     Route: 042
     Dates: start: 20090905, end: 20090905

REACTIONS (2)
  - OVERDOSE [None]
  - RENAL FAILURE ACUTE [None]
